FAERS Safety Report 17526307 (Version 1)
Quarter: 2020Q1

REPORT INFORMATION
  Report Type: Other
  Country: CA (occurrence: CA)
  Receive Date: 20200311
  Receipt Date: 20200311
  Transmission Date: 20200409
  Serious: Yes (Life-Threatening, Other)
  Sender: FDA-Public Use
  Company Number: CA-ASTELLAS-2020US008350

PATIENT
  Age: 45 Year
  Sex: Female

DRUGS (51)
  1. TACROLIMUS. [Suspect]
     Active Substance: TACROLIMUS
     Route: 048
  2. PROGRAF [Suspect]
     Active Substance: TACROLIMUS
     Route: 048
  3. PROGRAF [Suspect]
     Active Substance: TACROLIMUS
     Route: 048
  4. PROGRAF [Suspect]
     Active Substance: TACROLIMUS
     Dosage: 22 MG, UNKNOWN FREQ. (2 EVERY 1 DAY)
     Route: 048
  5. ENBREL [Suspect]
     Active Substance: ETANERCEPT
     Route: 058
  6. MYCOPHENOLATE MOFETIL. [Suspect]
     Active Substance: MYCOPHENOLATE MOFETIL
     Indication: PRODUCT USED FOR UNKNOWN INDICATION
     Dosage: UNK, UNKNOWN FREQ.
     Route: 065
  7. THYMOGLOBULIN [Suspect]
     Active Substance: LAPINE T-LYMPHOCYTE IMMUNE GLOBULIN
     Indication: TRANSPLANT
     Route: 065
  8. TACROLIMUS. [Suspect]
     Active Substance: TACROLIMUS
     Route: 048
  9. PROGRAF [Suspect]
     Active Substance: TACROLIMUS
     Route: 048
  10. PROGRAF [Suspect]
     Active Substance: TACROLIMUS
     Dosage: 1000 MG, UNKNOWN FREQ. (2 EVERY 1 DAY)
     Route: 048
  11. ENBREL [Suspect]
     Active Substance: ETANERCEPT
     Indication: PRODUCT USED FOR UNKNOWN INDICATION
     Route: 065
  12. MYCOPHENOLATE MOFETIL. [Suspect]
     Active Substance: MYCOPHENOLATE MOFETIL
     Indication: PRODUCT USED FOR UNKNOWN INDICATION
     Dosage: 1000 MG, UNKNOWN FREQ. (2 EVERY 1 DAY)
     Route: 065
  13. MYCOPHENOLATE MOFETIL. [Suspect]
     Active Substance: MYCOPHENOLATE MOFETIL
     Dosage: 2000 MG, UNKNOWN FREQ. (2 EVERY 1 DAY)
     Route: 065
  14. NEORAL [Suspect]
     Active Substance: CYCLOSPORINE
     Indication: TRANSPLANT
     Dosage: 2.5 MG, UNKNOWN FREQ. (2 EVERY 1 DAY)
     Route: 048
  15. NEORAL [Suspect]
     Active Substance: CYCLOSPORINE
     Indication: TRANSPLANT
     Dosage: UNK, UNKNOWN FREQ. (2 EVERY 1 DAY)
     Route: 065
  16. TACROLIMUS. [Suspect]
     Active Substance: TACROLIMUS
     Route: 048
  17. PROGRAF [Suspect]
     Active Substance: TACROLIMUS
     Route: 048
  18. PROGRAF [Suspect]
     Active Substance: TACROLIMUS
     Dosage: 2 MG, UNKNOWN FREQ. (2 EVERY 1 DAY)
     Route: 048
  19. ENBREL [Suspect]
     Active Substance: ETANERCEPT
     Route: 058
  20. ANTITHYMOCYTE IMMUNOGLOBULIN [Suspect]
     Active Substance: THYMOCYTE IMMUNE GLOBULIN NOS
     Indication: PRODUCT USED FOR UNKNOWN INDICATION
     Route: 065
  21. TACROLIMUS. [Suspect]
     Active Substance: TACROLIMUS
     Indication: PRODUCT USED FOR UNKNOWN INDICATION
     Dosage: 2.5 MG, UNKNOWN FREQ. (2 EVERY 1 DAY)
     Route: 048
  22. PROGRAF [Suspect]
     Active Substance: TACROLIMUS
     Indication: TRANSPLANT
     Dosage: 3.0 MG, UNKNOWN FREQ. (2 EVERY 1 DAY)
     Route: 048
  23. PROGRAF [Suspect]
     Active Substance: TACROLIMUS
     Dosage: 2.5 MG, UNKNOWN FREQ. (2 EVERY 1 DAY)
     Route: 048
  24. PROGRAF [Suspect]
     Active Substance: TACROLIMUS
     Dosage: 2 MG, UNKNOWN FREQ. (2 EVERY 1 DAY)
     Route: 048
  25. PROGRAF [Suspect]
     Active Substance: TACROLIMUS
     Route: 048
  26. MYCOPHENOLATE MOFETIL. [Suspect]
     Active Substance: MYCOPHENOLATE MOFETIL
     Indication: TRANSPLANT
     Dosage: 1000 MG, UNKNOWN FREQ. (2 EVERY 1 DAY)
     Route: 048
  27. MYCOPHENOLATE MOFETIL. [Suspect]
     Active Substance: MYCOPHENOLATE MOFETIL
     Route: 048
  28. NEORAL [Suspect]
     Active Substance: CYCLOSPORINE
     Dosage: 2 MG, UNKNOWN FREQ. (2 EVERY 1 DAY)
     Route: 048
  29. PROGRAF [Suspect]
     Active Substance: TACROLIMUS
     Route: 048
  30. PROGRAF [Suspect]
     Active Substance: TACROLIMUS
     Route: 048
  31. PROGRAF [Suspect]
     Active Substance: TACROLIMUS
     Route: 048
  32. ENBREL [Suspect]
     Active Substance: ETANERCEPT
     Indication: PRODUCT USED FOR UNKNOWN INDICATION
     Route: 058
  33. NEORAL [Suspect]
     Active Substance: CYCLOSPORINE
     Dosage: 3 MG, UNKNOWN FREQ. (2 EVERY 1 DAY)
     Route: 048
  34. REMICADE [Suspect]
     Active Substance: INFLIXIMAB
     Indication: PRODUCT USED FOR UNKNOWN INDICATION
     Dosage: UNK UNK, UNKNOWN FREQ.
     Route: 042
  35. ANTITHYMOCYTE IMMUNOGLOBULIN (HORSE) [Suspect]
     Active Substance: EQUINE THYMOCYTE IMMUNE GLOBULIN
     Indication: TRANSPLANT
     Route: 065
  36. TACROLIMUS. [Suspect]
     Active Substance: TACROLIMUS
     Dosage: 3 MG, UNKNOWN FREQ. (2 EVERY 1 DAY)
     Route: 048
  37. PROGRAF [Suspect]
     Active Substance: TACROLIMUS
     Route: 048
  38. PROGRAF [Suspect]
     Active Substance: TACROLIMUS
     Indication: TRANSPLANT
     Dosage: UNK UNK, UNKNOWN FREQ.
     Route: 048
  39. PROGRAF [Suspect]
     Active Substance: TACROLIMUS
     Route: 048
  40. ENBREL [Suspect]
     Active Substance: ETANERCEPT
     Route: 058
  41. ENBREL [Suspect]
     Active Substance: ETANERCEPT
     Route: 058
  42. SULFASALAZINE. [Suspect]
     Active Substance: SULFASALAZINE
     Indication: RHEUMATOID ARTHRITIS
     Route: 065
  43. PROGRAF [Suspect]
     Active Substance: TACROLIMUS
     Dosage: UNK, UNKNOWN FREQ.
     Route: 048
  44. ENBREL [Suspect]
     Active Substance: ETANERCEPT
     Indication: PRODUCT USED FOR UNKNOWN INDICATION
     Route: 048
  45. RAPAMUNE [Suspect]
     Active Substance: SIROLIMUS
     Indication: TRANSPLANT
     Dosage: UNK UNK, UNKNOWN FREQ.
     Route: 042
  46. ANTITHYMOCYTE IMMUNOGLOBULIN [Suspect]
     Active Substance: THYMOCYTE IMMUNE GLOBULIN NOS
     Route: 065
  47. ANTITHYMOCYTE IMMUNOGLOBULIN [Suspect]
     Active Substance: THYMOCYTE IMMUNE GLOBULIN NOS
     Route: 065
  48. TACROLIMUS. [Suspect]
     Active Substance: TACROLIMUS
     Dosage: 2.0 MG, UNKNOWN FREQ. (2 EVERY 1 DAY)
     Route: 048
  49. PROGRAF [Suspect]
     Active Substance: TACROLIMUS
     Dosage: 3 MG, UNKNOWN FREQ. (2 EVERY 1 DAY)
     Route: 048
  50. DACLIZUMAB [Suspect]
     Active Substance: DACLIZUMAB
     Indication: TRANSPLANT
     Route: 042
  51. ANTITHYMOCYTE IMMUNOGLOBULIN [Suspect]
     Active Substance: THYMOCYTE IMMUNE GLOBULIN NOS
     Indication: PRODUCT USED FOR UNKNOWN INDICATION
     Route: 065

REACTIONS (16)
  - Ovarian cyst [Not Recovered/Not Resolved]
  - Transplant dysfunction [Not Recovered/Not Resolved]
  - Incorrect route of product administration [Not Recovered/Not Resolved]
  - Acne [Not Recovered/Not Resolved]
  - Alopecia [Not Recovered/Not Resolved]
  - Condition aggravated [Not Recovered/Not Resolved]
  - Liver function test abnormal [Not Recovered/Not Resolved]
  - Pneumonia [Not Recovered/Not Resolved]
  - Rheumatoid arthritis [Not Recovered/Not Resolved]
  - Transplant rejection [Not Recovered/Not Resolved]
  - Pain [Not Recovered/Not Resolved]
  - Sleep disorder due to general medical condition, insomnia type [Not Recovered/Not Resolved]
  - Overdose [Not Recovered/Not Resolved]
  - Drug ineffective [Not Recovered/Not Resolved]
  - Product use issue [Not Recovered/Not Resolved]
  - Loss of personal independence in daily activities [Not Recovered/Not Resolved]
